FAERS Safety Report 7967844-0 (Version None)
Quarter: 2011Q4

REPORT INFORMATION
  Report Type: 
  Country: None (occurrence: None)
  Receive Date: 20111209
  Receipt Date: 20111205
  Transmission Date: 20120403
  Serious: Yes (Hospitalization)
  Sender: FDA-Public Use
  Company Number: US-BAYER-2011-116598

PATIENT
  Sex: Female

DRUGS (2)
  1. DROSPIRENONE AND ETHINYL ESTRADIOL [Suspect]
     Dosage: UNK
     Dates: start: 20040101, end: 20100121
  2. YASMIN [Suspect]
     Dosage: UNK
     Dates: start: 20040101, end: 20100121

REACTIONS (5)
  - PAIN [None]
  - ANXIETY [None]
  - INJURY [None]
  - PULMONARY EMBOLISM [None]
  - ANHEDONIA [None]
